FAERS Safety Report 24154524 (Version 1)
Quarter: 2024Q3

REPORT INFORMATION
  Report Type: Spontaneous
  Country: US (occurrence: US)
  Receive Date: 20240731
  Receipt Date: 20240731
  Transmission Date: 20241017
  Serious: Yes (Death, Hospitalization, Disabling)
  Sender: AMGEN
  Company Number: US-AMGEN-USASP2024146937

PATIENT
  Age: 92 Year
  Sex: Female

DRUGS (1)
  1. PROLIA [Suspect]
     Active Substance: DENOSUMAB
     Indication: Product used for unknown indication
     Dosage: UNK, Q6MO
     Route: 058

REACTIONS (2)
  - Lower limb fracture [Unknown]
  - Cardiac failure [Fatal]

NARRATIVE: CASE EVENT DATE: 20231201
